FAERS Safety Report 9670744 (Version 1)
Quarter: 2013Q4

REPORT INFORMATION
  Report Type: Spontaneous
  Country: US (occurrence: US)
  Receive Date: 20131106
  Receipt Date: 20131106
  Transmission Date: 20140711
  Serious: No
  Sender: FDA-Public Use
  Company Number: US-ENDO PHARMACEUTICALS INC.-HYDR20130008

PATIENT
  Sex: Female

DRUGS (2)
  1. HYDROCORTISONE TABLETS 10MG [Suspect]
     Indication: ADDISON^S DISEASE
     Route: 048
     Dates: start: 201010
  2. HYDROCORTISONE TABLETS 10MG [Suspect]
     Indication: ADDISON^S DISEASE

REACTIONS (3)
  - Dizziness [Unknown]
  - Feeling abnormal [Unknown]
  - Gait disturbance [Unknown]
